FAERS Safety Report 4537098-6 (Version None)
Quarter: 2004Q4

REPORT INFORMATION
  Report Type: 
  Country: None (occurrence: None)
  Receive Date: 20041223
  Receipt Date: 20041222
  Transmission Date: 20050328
  Serious: Yes (Hospitalization)
  Sender: FDA-Public Use
  Company Number: FR-GLAXOSMITHKLINE-B0362660A

PATIENT
  Age: 41 Year
  Sex: Male
  Weight: 62 kg

DRUGS (5)
  1. WELLVONE [Suspect]
     Indication: PNEUMOCYSTIS CARINII PNEUMONIA
     Dosage: 10ML PER DAY
     Route: 048
     Dates: start: 20040616, end: 20040722
  2. EPIVIR [Concomitant]
     Indication: HIV INFECTION
     Route: 048
  3. INVIRASE [Concomitant]
     Indication: HIV INFECTION
     Route: 048
  4. NORVIR [Concomitant]
     Indication: HIV INFECTION
     Route: 048
  5. AGENERASE [Concomitant]
     Indication: HIV INFECTION
     Route: 048

REACTIONS (14)
  - ANOREXIA [None]
  - ASTHENIA [None]
  - CONJUNCTIVITIS [None]
  - DIARRHOEA [None]
  - EOSINOPHILIA [None]
  - FACE OEDEMA [None]
  - GENERAL PHYSICAL HEALTH DETERIORATION [None]
  - HYPERSENSITIVITY [None]
  - OEDEMA PERIPHERAL [None]
  - ORAL CANDIDIASIS [None]
  - PRURITUS GENERALISED [None]
  - PYREXIA [None]
  - WEIGHT DECREASED [None]
  - WHITE BLOOD CELL COUNT DECREASED [None]
